FAERS Safety Report 8591518-9 (Version None)
Quarter: 2012Q2

REPORT INFORMATION
  Report Type: 
  Country: None (occurrence: None)
  Receive Date: 20120423
  Receipt Date: 20100521
  Transmission Date: 20120825
  Serious: Yes (Death)
  Sender: FDA-Public Use
  Company Number: PHHY2010US33176

PATIENT
  Sex: Female

DRUGS (2)
  1. LOPRESSOR [Suspect]
  2. HALDOL [Concomitant]

REACTIONS (1)
  - OVERDOSE [None]
